FAERS Safety Report 12190299 (Version 1)
Quarter: 2016Q1

REPORT INFORMATION
  Report Type: Spontaneous
  Country: US (occurrence: US)
  Receive Date: 20160318
  Receipt Date: 20160318
  Transmission Date: 20160526
  Serious: Yes (Life-Threatening, Hospitalization, Other)
  Sender: FDA-Public Use
  Company Number: US-ASTELLAS-2016US009931

PATIENT
  Age: 49 Year
  Sex: Female

DRUGS (15)
  1. TACROLIMUS. [Suspect]
     Active Substance: TACROLIMUS
     Dosage: 1 MG, TWICE DAILY (WITH NO GOAL TROUGH)
     Route: 065
  2. MYCOPHENOLATE MOFETIL. [Suspect]
     Active Substance: MYCOPHENOLATE MOFETIL
     Route: 065
  3. METHYLPREDNISOLONE. [Concomitant]
     Active Substance: METHYLPREDNISOLONE
     Dosage: 250 MG, UNKNOWN FREQ.(ON DAY TWO)
     Route: 042
  4. ALEMTUZUMAB [Concomitant]
     Active Substance: ALEMTUZUMAB
     Indication: PANCREAS TRANSPLANT
     Route: 042
  5. SIROLIMUS. [Concomitant]
     Active Substance: SIROLIMUS
     Indication: PANCREAS TRANSPLANT
     Dosage: UNK UNK, UNKNOWN FREQ.
     Route: 065
  6. PREDNISONE. [Concomitant]
     Active Substance: PREDNISONE
     Route: 065
  7. MYCOPHENOLATE MOFETIL. [Suspect]
     Active Substance: MYCOPHENOLATE MOFETIL
  8. TACROLIMUS. [Suspect]
     Active Substance: TACROLIMUS
     Dosage: TROUGH RANGE 6-8 NG/ML, UNKNOWN FREQ.
     Route: 065
  9. MYCOPHENOLATE MOFETIL. [Suspect]
     Active Substance: MYCOPHENOLATE MOFETIL
     Indication: PANCREAS TRANSPLANT
     Route: 065
  10. TACROLIMUS. [Suspect]
     Active Substance: TACROLIMUS
     Indication: PANCREAS TRANSPLANT
     Dosage: UNK UNK, UNKNOWN FREQ.
     Route: 065
  11. MYCOPHENOLATE MOFETIL. [Suspect]
     Active Substance: MYCOPHENOLATE MOFETIL
     Route: 065
  12. PREDNISONE. [Concomitant]
     Active Substance: PREDNISONE
     Indication: PRODUCT USED FOR UNKNOWN INDICATION
     Dosage: UNK UNK, UNKNOWN FREQ.
  13. METHYLPREDNISOLONE. [Concomitant]
     Active Substance: METHYLPREDNISOLONE
     Indication: PANCREAS TRANSPLANT
     Dosage: 500 MG, UNKNOWN FREQ. (ON DAY ONE)
     Route: 042
  14. METHYLPREDNISOLONE. [Concomitant]
     Active Substance: METHYLPREDNISOLONE
     Dosage: 125 MG, UNKNOWN FREQ. (ON DAY THREE)
     Route: 042
  15. MYCOPHENOLATE MOFETIL. [Suspect]
     Active Substance: MYCOPHENOLATE MOFETIL
     Route: 065

REACTIONS (9)
  - Hypovolaemia [Unknown]
  - Off label use [Unknown]
  - Gastroenteritis norovirus [Recovered/Resolved]
  - Syncope [Unknown]
  - Pancreas transplant rejection [Recovered/Resolved]
  - End stage renal disease [Unknown]
  - Transplant rejection [Recovered/Resolved]
  - Clostridium difficile infection [Recovered/Resolved]
  - Pneumocystis jirovecii pneumonia [Unknown]
